FAERS Safety Report 9278964 (Version 1)
Quarter: 2013Q2

REPORT INFORMATION
  Report Type: Spontaneous
  Country: US (occurrence: None)
  Receive Date: 20130506
  Receipt Date: 20130506
  Transmission Date: 20140414
  Serious: Yes (Hospitalization)
  Sender: FDA-Public Use
  Company Number: None

PATIENT
  Age: 88 Year
  Sex: Male

DRUGS (1)
  1. BENADRYL [Suspect]
     Dates: start: 20121208, end: 20121208

REACTIONS (2)
  - Mental status changes [None]
  - Unresponsive to stimuli [None]
